FAERS Safety Report 8604905 (Version 2)
Quarter: 2012Q4

REPORT INFORMATION
  Report Type: 
  Country: US (occurrence: US)
  Receive Date: 20120608
  Receipt Date: 20121129
  Transmission Date: 20130627
  Serious: Yes (Other)
  Sender: FDA-Public Use
  Company Number: US-ROCHE-1053142

PATIENT
  Age: 83 Year
  Sex: Male
  Weight: 104.42 kg

DRUGS (11)
  1. XELODA [Suspect]
     Indication: ADENOCARCINOMA
     Route: 048
     Dates: start: 20111018, end: 20120208
  2. HYDROCHLOROTHIAZIDE [Concomitant]
     Route: 048
  3. ADVAIR DISKUS [Concomitant]
     Dosage: 500-50 mcg misc inhale 2 puffs daily
     Route: 065
  4. GABAPENTIN [Concomitant]
     Route: 048
  5. AVAPRO [Concomitant]
     Route: 048
  6. WARFARIN SODIUM [Concomitant]
     Route: 048
  7. POTASSIUM CHLORIDE [Concomitant]
     Route: 065
  8. SYMBICORT [Concomitant]
     Dosage: 160-4.5 mcg inhalation aerosol, inhale 2 puffs
     Route: 065
  9. FERROUS SULPHATE [Concomitant]
     Route: 048
  10. VITAMIN C [Concomitant]
     Route: 048
  11. CEPHALEXIN [Concomitant]
     Route: 048

REACTIONS (3)
  - Drug ineffective [Unknown]
  - Blood disorder [Unknown]
  - Disease progression [Unknown]
